FAERS Safety Report 5679950-4 (Version None)
Quarter: 2008Q1

REPORT INFORMATION
  Report Type: 
  Country: None (occurrence: None)
  Receive Date: 20080324
  Receipt Date: 20080317
  Transmission Date: 20080703
  Serious: Yes (Other)
  Sender: FDA-Public Use
  Company Number: GXKR2008DE02646

PATIENT
  Age: 4 Year
  Sex: Female

DRUGS (1)
  1. IBUPROFEN G-IBU+SUSPENSION (IBUPROFEN) SUSPENSION [Suspect]
     Dosage: ORAL
     Route: 048

REACTIONS (2)
  - DIPLEGIA [None]
  - TONGUE PARALYSIS [None]
